FAERS Safety Report 18655066 (Version 2)
Quarter: 2021Q1

REPORT INFORMATION
  Report Type: Spontaneous
  Country: US (occurrence: US)
  Receive Date: 20201223
  Receipt Date: 20210127
  Transmission Date: 20210419
  Serious: Yes (Death, Hospitalization)
  Sender: FDA-Public Use
  Company Number: US-PFIZER INC-2020505474

PATIENT
  Age: 76 Year
  Sex: Male

DRUGS (1)
  1. MEKTOVI [Suspect]
     Active Substance: BINIMETINIB
     Indication: MALIGNANT MELANOMA
     Dosage: 45 MG

REACTIONS (4)
  - Death [Fatal]
  - COVID-19 [Unknown]
  - Cerebral thrombosis [Unknown]
  - Neoplasm progression [Unknown]
